FAERS Safety Report 22111165 (Version 1)
Quarter: 2023Q1

REPORT INFORMATION
  Report Type: Spontaneous
  Country: IN (occurrence: IN)
  Receive Date: 20230317
  Receipt Date: 20230317
  Transmission Date: 20230417
  Serious: Yes (Death, Hospitalization, Other)
  Sender: FDA-Public Use
  Company Number: IN-MLMSERVICE-20230306-4136933-5

PATIENT
  Age: 48 Year
  Sex: Male

DRUGS (2)
  1. DEXAMETHASONE [Suspect]
     Active Substance: DEXAMETHASONE
     Indication: COVID-19
     Dosage: INJECTABLE
     Route: 065
     Dates: start: 202105, end: 202105
  2. OXYGEN [Suspect]
     Active Substance: OXYGEN
     Indication: COVID-19
     Dosage: HUMIDIFIED OXYGEN
     Route: 065
     Dates: start: 202105, end: 202105

REACTIONS (6)
  - Diabetic ketoacidosis [Fatal]
  - Rhinocerebral mucormycosis [Unknown]
  - Palatal disorder [Unknown]
  - Perforation [Unknown]
  - Cutaneous mucormycosis [Unknown]
  - Hyperglycaemia [Unknown]

NARRATIVE: CASE EVENT DATE: 20210101
